FAERS Safety Report 6998690-2 (Version None)
Quarter: 2010Q3

REPORT INFORMATION
  Report Type: 
  Country: None (occurrence: None)
  Receive Date: 20100920
  Receipt Date: 20091222
  Transmission Date: 20110219
  Serious: Yes (Other)
  Sender: FDA-Public Use
  Company Number: US-ASTRAZENECA-2009UW20729

PATIENT
  Age: 46 Year
  Sex: Male
  Weight: 145.1 kg

DRUGS (14)
  1. SEROQUEL [Suspect]
     Indication: BIPOLAR DISORDER
     Route: 048
     Dates: start: 20040101, end: 20070101
  2. SEROQUEL [Suspect]
     Indication: SCHIZOPHRENIA
     Route: 048
     Dates: start: 20040101, end: 20070101
  3. TOPAMAX [Concomitant]
     Indication: OBESITY
     Dates: start: 20070101, end: 20080101
  4. GEODON [Concomitant]
     Indication: SCHIZOPHRENIA
  5. GEODON [Concomitant]
     Indication: BIPOLAR DISORDER
  6. XANAX [Concomitant]
     Indication: SCHIZOPHRENIA
  7. XANAX [Concomitant]
     Indication: BIPOLAR DISORDER
  8. XANAX [Concomitant]
     Indication: DEPRESSION
  9. TEMAZEPAM [Concomitant]
     Indication: DEPRESSION
  10. DIOVAN [Concomitant]
     Indication: HYPERLIPIDAEMIA
  11. DIOVAN [Concomitant]
     Indication: BLOOD TRIGLYCERIDES INCREASED
  12. ABILIFY [Concomitant]
     Dates: start: 20070101
  13. THORAZINE [Concomitant]
     Dates: start: 19770101
  14. THORAZINE [Concomitant]
     Dates: start: 19900101, end: 19930101

REACTIONS (8)
  - BLOOD CHOLESTEROL INCREASED [None]
  - BLOOD TRIGLYCERIDES INCREASED [None]
  - HYPERLIPIDAEMIA [None]
  - KETOACIDOSIS [None]
  - OBESITY [None]
  - PANCREATITIS [None]
  - TYPE 2 DIABETES MELLITUS [None]
  - WEIGHT INCREASED [None]
